FAERS Safety Report 8326113-X (Version None)
Quarter: 2012Q2

REPORT INFORMATION
  Report Type: 
  Country: None (occurrence: None)
  Receive Date: 20120501
  Receipt Date: 20120425
  Transmission Date: 20120825
  Serious: No
  Sender: FDA-Public Use
  Company Number: US-PFIZER INC-2012103061

PATIENT
  Sex: Male
  Weight: 83.9 kg

DRUGS (3)
  1. ALLOPURINOL [Concomitant]
     Indication: GOUT
     Dosage: UNK
  2. LISINOPRIL [Concomitant]
     Indication: HYPERTENSION
     Dosage: UNK
  3. LIPITOR [Suspect]
     Indication: BLOOD CHOLESTEROL INCREASED
     Dosage: 20 MG, 1X/DAY
     Route: 048
     Dates: start: 20120101

REACTIONS (2)
  - PAIN IN EXTREMITY [None]
  - PAIN [None]
